FAERS Safety Report 7583477-2 (Version None)
Quarter: 2011Q2

REPORT INFORMATION
  Report Type: 
  Country: None (occurrence: None)
  Receive Date: 20110630
  Receipt Date: 20110623
  Transmission Date: 20111010
  Serious: Yes (Hospitalization, Disabling, Other)
  Sender: FDA-Public Use
  Company Number: US-ROCHE-757928

PATIENT
  Sex: Female
  Weight: 69.9 kg

DRUGS (13)
  1. SPIRONOLACTONE [Concomitant]
     Route: 048
  2. COUMADIN [Concomitant]
     Route: 048
  3. SOLU-MEDROL [Concomitant]
  4. ACTEMRA [Suspect]
     Route: 042
     Dates: start: 20110112, end: 20110112
  5. ACTEMRA [Suspect]
     Route: 042
     Dates: start: 20101213, end: 20101213
  6. PERCOCET [Concomitant]
     Route: 048
  7. BENADRYL [Concomitant]
  8. ACTEMRA [Suspect]
     Dosage: OTHER INDICATION: RHEUMATOID ARTHRITIS, DOSE: ^280^
     Route: 042
  9. IBUPROFEN [Concomitant]
     Route: 048
  10. ACTEMRA [Suspect]
     Route: 042
     Dates: start: 20110222, end: 20110222
  11. METHOTREXATE SODIUM [Concomitant]
     Indication: RHEUMATOID ARTHRITIS
     Dosage: START DATE: YEARS, OTHER INDICATION:STILL'S DISEASE
     Route: 058
     Dates: start: 20110103
  12. TYLENOL-500 [Concomitant]
     Route: 048
  13. PREDNISONE [Concomitant]
     Indication: RHEUMATOID ARTHRITIS
     Dosage: START DATE: YEARS, OTHER INDICATION:STILL'S DISEASE
     Route: 048
     Dates: start: 20110104

REACTIONS (10)
  - ACUTE RIGHT VENTRICULAR FAILURE [None]
  - ANAEMIA [None]
  - ARTHRALGIA [None]
  - MESENTERIC ARTERY THROMBOSIS [None]
  - VENTRICULAR TACHYCARDIA [None]
  - URTICARIA [None]
  - WEIGHT INCREASED [None]
  - VENOUS THROMBOSIS [None]
  - PULMONARY HYPERTENSION [None]
  - PHARYNGEAL OEDEMA [None]
